FAERS Safety Report 9160325 (Version 2)
Quarter: 2013Q1

REPORT INFORMATION
  Report Type: Spontaneous
  Country: DE (occurrence: DE)
  Receive Date: 20130313
  Receipt Date: 20130322
  Transmission Date: 20140127
  Serious: Yes (Other)
  Sender: FDA-Public Use
  Company Number: DE-PFIZER INC-2013080172

PATIENT
  Age: 79 Year
  Sex: Female

DRUGS (3)
  1. LYRICA [Suspect]
     Indication: POLYNEUROPATHY
     Dosage: 25 MG, 1X/DAY
     Dates: start: 201212
  2. LYRICA [Suspect]
     Dosage: 25 MG, 2X/DAY
  3. JATROSOM [Concomitant]
     Indication: DEPRESSION
     Dosage: UNK

REACTIONS (4)
  - Renal failure [Unknown]
  - Mental impairment [Unknown]
  - Insomnia [Unknown]
  - Somnolence [Unknown]
